FAERS Safety Report 5503856-4 (Version None)
Quarter: 2007Q4

REPORT INFORMATION
  Report Type: 
  Country: None (occurrence: None)
  Receive Date: 20071030
  Receipt Date: 20071022
  Transmission Date: 20080405
  Serious: Yes (Hospitalization)
  Sender: FDA-Public Use
  Company Number: WAES 0611USA00811

PATIENT
  Age: 47 Year
  Sex: Female

DRUGS (21)
  1. DECADRON [Suspect]
     Indication: GLIOBLASTOMA MULTIFORME
     Dosage: PO
     Route: 048
     Dates: start: 20060901, end: 20061001
  2. BACTRIM [Suspect]
     Dates: end: 20061020
  3. TEMODAR [Suspect]
     Dosage: 75 MG/M[2]
     Dates: end: 20060925
  4. KEPPRA [Concomitant]
  5. PREMPRO [Concomitant]
  6. ZOFRAN [Concomitant]
  7. ARNICA [Concomitant]
  8. ASCORBIC ACID [Concomitant]
  9. BETA CAROTENE [Concomitant]
  10. CALCIUM PHOSPHATE, TRIBASIC [Concomitant]
  11. CYANOCOBALAMIN [Concomitant]
  12. FERROUS PHOSPHATE [Concomitant]
  13. FLAXSEED [Concomitant]
  14. LYCOPENS [Concomitant]
  15. OMEGA-3 MARINE TRIGLYCERIDES [Concomitant]
  16. SHARK LIVER OIL [Concomitant]
  17. UBIDECARENONE [Concomitant]
  18. VITAMIN D (UNSPECIFIED) [Concomitant]
  19. VITAMIN E [Concomitant]
  20. VITAMINS (UNSPECIFIED) [Concomitant]
  21. WITCH HAZEL [Concomitant]

REACTIONS (11)
  - APLASTIC ANAEMIA [None]
  - BONE MARROW FAILURE [None]
  - CELLULITIS [None]
  - FEBRILE NEUTROPENIA [None]
  - GLIOBLASTOMA MULTIFORME [None]
  - HAEMORRHOIDS [None]
  - LYMPHOPENIA [None]
  - MALIGNANT NEOPLASM PROGRESSION [None]
  - PROCTALGIA [None]
  - RADIATION INJURY [None]
  - THROMBOCYTOPENIA [None]
